FAERS Safety Report 5582941-5 (Version None)
Quarter: 2007Q4

REPORT INFORMATION
  Report Type: 
  Country: None (occurrence: None)
  Receive Date: 20071231
  Receipt Date: 20071221
  Transmission Date: 20080405
  Serious: Yes (Hospitalization)
  Sender: FDA-Public Use
  Company Number: 269-C5013-07101759

PATIENT
  Age: 78 Year
  Sex: Female
  Weight: 47 kg

DRUGS (4)
  1. CC-5013\PLACEBO (LENALIDOMIDE) (CAPSULES) [Suspect]
     Indication: MULTIPLE MYELOMA
     Dosage: 10 MG, DAYS 1-21, ORAL
     Route: 048
     Dates: start: 20071001, end: 20071021
  2. CC-5013\PLACEBO (LENALIDOMIDE) (CAPSULES) [Suspect]
     Indication: MULTIPLE MYELOMA
     Dosage: 10 MG, DAYS 1-21, ORAL
     Route: 048
     Dates: start: 20071010, end: 20071102
  3. MELPHALAN (MELPHALAN) [Suspect]
     Indication: MULTIPLE MYELOMA
     Dosage: 0.18MG/KG, DAYS 1-4, ORAL
     Route: 048
     Dates: start: 20071001, end: 20071004
  4. PREDNISONE [Suspect]
     Indication: MULTIPLE MYELOMA
     Dosage: 2MG/KG, DAYS 1-4, ORAL
     Route: 048
     Dates: start: 20071001, end: 20071004

REACTIONS (5)
  - DERMATITIS EXFOLIATIVE [None]
  - FACE OEDEMA [None]
  - HAEMOGLOBIN ABNORMAL [None]
  - MONOCYTE COUNT INCREASED [None]
  - TOXIC SKIN ERUPTION [None]
